FAERS Safety Report 25612717 (Version 2)
Quarter: 2025Q3

REPORT INFORMATION
  Report Type: Spontaneous
  Country: US (occurrence: US)
  Receive Date: 20250728
  Receipt Date: 20250804
  Transmission Date: 20251020
  Serious: No
  Sender: ROCHE
  Company Number: US-ROCHE-10000340998

PATIENT
  Sex: Female

DRUGS (3)
  1. XOLAIR PFS [Suspect]
     Active Substance: OMALIZUMAB
     Indication: Urticaria
     Dosage: STRENGTH: 300 MG/2 ML
     Route: 058
     Dates: start: 201904
  2. XOLAIR PFS [Suspect]
     Active Substance: OMALIZUMAB
     Indication: Idiopathic urticaria
  3. MIRENA IUD SYS [Concomitant]
     Indication: Intra-uterine contraceptive device insertion

REACTIONS (1)
  - Urticaria [Not Recovered/Not Resolved]
